FAERS Safety Report 12930350 (Version 4)
Quarter: 2017Q1

REPORT INFORMATION
  Report Type: Spontaneous
  Country: BG (occurrence: BG)
  Receive Date: 20161110
  Receipt Date: 20170109
  Transmission Date: 20170428
  Serious: Yes (Hospitalization, Other)
  Sender: FDA-Public Use
  Company Number: BG-JNJFOC-20161104767

PATIENT
  Age: 40 Year
  Sex: Male

DRUGS (3)
  1. MESALAZINE [Suspect]
     Active Substance: MESALAMINE
     Indication: COLITIS ULCERATIVE
     Route: 065
  2. SIMPONI [Suspect]
     Active Substance: GOLIMUMAB
     Indication: COLITIS ULCERATIVE
     Route: 058
     Dates: start: 201605
  3. IMURAN [Concomitant]
     Active Substance: AZATHIOPRINE
     Indication: COLITIS ULCERATIVE
     Route: 048

REACTIONS (9)
  - Anal fistula [Recovered/Resolved]
  - Viral infection [Recovered/Resolved]
  - Rash generalised [Recovered/Resolved]
  - Body temperature increased [Recovered/Resolved]
  - Episcleritis [Recovered/Resolved]
  - Erythema nodosum [Recovered/Resolved]
  - Frequent bowel movements [Recovered/Resolved]
  - Conjunctival hyperaemia [Recovered/Resolved]
  - Dry eye [Recovered/Resolved]

NARRATIVE: CASE EVENT DATE: 2016
